FAERS Safety Report 16905442 (Version 2)
Quarter: 2019Q4

REPORT INFORMATION
  Report Type: Report from Study
  Country: US (occurrence: US)
  Receive Date: 20191010
  Receipt Date: 20191113
  Transmission Date: 20200122
  Serious: Yes (Other)
  Sender: FDA-Public Use
  Company Number: US-B.I. PHARMACEUTICALS,INC./RIDGEFIELD-2019-MR-000529

PATIENT
  Age: 80 Year
  Sex: Male

DRUGS (4)
  1. OFEV [Suspect]
     Active Substance: NINTEDANIB
     Indication: IDIOPATHIC PULMONARY FIBROSIS
     Dosage: 150 MG BID
     Route: 048
     Dates: start: 20190620
  2. OFEV [Suspect]
     Active Substance: NINTEDANIB
     Route: 048
     Dates: start: 20190622, end: 20190908
  3. OFEV [Suspect]
     Active Substance: NINTEDANIB
     Route: 048
     Dates: start: 20190621
  4. OFEV [Suspect]
     Active Substance: NINTEDANIB
     Route: 048

REACTIONS (23)
  - Fatigue [Not Recovered/Not Resolved]
  - Fall [Unknown]
  - Nausea [Not Recovered/Not Resolved]
  - Diarrhoea [Recovered/Resolved]
  - Dysphagia [Unknown]
  - Asthenia [Not Recovered/Not Resolved]
  - Dry eye [Recovered/Resolved]
  - Fatigue [Not Recovered/Not Resolved]
  - Haematoma [Recovered/Resolved]
  - Skin mass [Not Recovered/Not Resolved]
  - Fall [Unknown]
  - Diarrhoea [Recovered/Resolved]
  - Fatigue [Recovered/Resolved]
  - Fall [Recovered/Resolved]
  - Insomnia [Recovered/Resolved]
  - Haematoma [Unknown]
  - Fall [Not Recovered/Not Resolved]
  - Head injury [Unknown]
  - Skin abrasion [Not Recovered/Not Resolved]
  - Diarrhoea [Recovered/Resolved]
  - Mouth swelling [Recovered/Resolved]
  - Dizziness [Not Recovered/Not Resolved]
  - Head injury [Not Recovered/Not Resolved]

NARRATIVE: CASE EVENT DATE: 20190623
